FAERS Safety Report 22525094 (Version 1)
Quarter: 2023Q2

REPORT INFORMATION
  Report Type: Spontaneous
  Country: US (occurrence: US)
  Receive Date: 20230606
  Receipt Date: 20230606
  Transmission Date: 20230721
  Serious: Yes (Hospitalization)
  Sender: FDA-Public Use
  Company Number: US-drreddys-LIT/USA/23/0166205

PATIENT
  Age: 36 Year
  Sex: Female

DRUGS (15)
  1. MELPHALAN HYDROCHLORIDE [Suspect]
     Active Substance: MELPHALAN HYDROCHLORIDE
     Indication: Immunosuppression
     Dosage: 140 MG/M2
  2. TACROLIMUS [Suspect]
     Active Substance: TACROLIMUS
     Indication: Immunosuppression
  3. TACROLIMUS [Suspect]
     Active Substance: TACROLIMUS
     Indication: Prophylaxis against graft versus host disease
  4. FLUDARABINE [Suspect]
     Active Substance: FLUDARABINE PHOSPHATE
     Indication: Immunosuppression
     Dosage: 140 MG/M2
  5. CYCLOPHOSPHAMIDE [Suspect]
     Active Substance: CYCLOPHOSPHAMIDE
     Indication: Immunosuppression
  6. CYCLOPHOSPHAMIDE [Suspect]
     Active Substance: CYCLOPHOSPHAMIDE
     Indication: Prophylaxis against graft versus host disease
  7. MYCOPHENOLATE MOFETIL [Suspect]
     Active Substance: MYCOPHENOLATE MOFETIL
     Indication: Immunosuppression
  8. MYCOPHENOLATE MOFETIL [Suspect]
     Active Substance: MYCOPHENOLATE MOFETIL
     Indication: Prophylaxis against graft versus host disease
  9. METHYLPREDNISOLONE [Suspect]
     Active Substance: METHYLPREDNISOLONE
     Indication: Immunosuppression
     Dosage: 2 MG/KG
  10. LETERMOVIR [Suspect]
     Active Substance: LETERMOVIR
     Indication: Antiviral prophylaxis
  11. DECITABINE [Suspect]
     Active Substance: DECITABINE
     Indication: Product used for unknown indication
  12. VENETOCLAX [Suspect]
     Active Substance: VENETOCLAX
     Indication: Product used for unknown indication
  13. FOSCARNET [Suspect]
     Active Substance: FOSCARNET
     Indication: Product used for unknown indication
  14. GANCICLOVIR [Suspect]
     Active Substance: GANCICLOVIR
     Indication: Cytomegalovirus viraemia
     Dosage: 2.5 MG/KG
  15. CYTARABINE [Suspect]
     Active Substance: CYTARABINE
     Indication: Product used for unknown indication

REACTIONS (9)
  - Retrograde amnesia [Unknown]
  - Graft versus host disease [Unknown]
  - Photophobia [Unknown]
  - Hepatic enzyme increased [Unknown]
  - Human herpesvirus 6 infection [Unknown]
  - Encephalitis [Unknown]
  - Cytomegalovirus viraemia [Unknown]
  - Renal impairment [Unknown]
  - Drug ineffective [Unknown]
